FAERS Safety Report 19770281 (Version 2)
Quarter: 2021Q3

REPORT INFORMATION
  Report Type: Spontaneous
  Country: GB (occurrence: GB)
  Receive Date: 20210901
  Receipt Date: 20210915
  Transmission Date: 20211014
  Serious: Yes (Other)
  Sender: FDA-Public Use
  Company Number: GB-AUROBINDO-AUR-APL-2021-036910

PATIENT
  Age: 29 Year
  Sex: Female
  Weight: 48.53 kg

DRUGS (1)
  1. CLARITHROMYCIN. [Suspect]
     Active Substance: CLARITHROMYCIN
     Indication: ILL-DEFINED DISORDER
     Dosage: 500 MILLIGRAM, TWO TIMES A DAY
     Route: 048
     Dates: start: 20210812

REACTIONS (3)
  - Nightmare [Unknown]
  - Anxiety [Unknown]
  - Night sweats [Unknown]

NARRATIVE: CASE EVENT DATE: 20210815
